FAERS Safety Report 17740353 (Version 1)
Quarter: 2020Q2

REPORT INFORMATION
  Report Type: Spontaneous
  Country: FR (occurrence: FR)
  Receive Date: 20200504
  Receipt Date: 20200504
  Transmission Date: 20200714
  Serious: Yes (Hospitalization)
  Sender: FDA-Public Use
  Company Number: FR-BAUSCH-BL-2020-012484

PATIENT
  Age: 43 Year
  Sex: Female
  Weight: 68 kg

DRUGS (3)
  1. TERCIAN [Suspect]
     Active Substance: CYAMEMAZINE
     Indication: INTENTIONAL OVERDOSE
     Route: 048
     Dates: start: 20200325, end: 20200325
  2. LOXAPAC [Suspect]
     Active Substance: LOXAPINE
     Indication: INTENTIONAL OVERDOSE
     Route: 048
     Dates: start: 20200325, end: 20200325
  3. VENLAFAXINE [Suspect]
     Active Substance: VENLAFAXINE HYDROCHLORIDE
     Indication: INTENTIONAL OVERDOSE
     Route: 048
     Dates: start: 20200325, end: 20200325

REACTIONS (5)
  - Pneumonia aspiration [Recovering/Resolving]
  - Poisoning deliberate [Recovering/Resolving]
  - Coma [Recovered/Resolved]
  - Respiratory distress [Recovered/Resolved]
  - Laryngeal oedema [Recovering/Resolving]

NARRATIVE: CASE EVENT DATE: 20200325
